FAERS Safety Report 9847255 (Version 1)
Quarter: 2014Q1

REPORT INFORMATION
  Report Type: Spontaneous
  Country: US (occurrence: US)
  Receive Date: 20140127
  Receipt Date: 20140127
  Transmission Date: 20141002
  Serious: Yes (Hospitalization)
  Sender: FDA-Public Use
  Company Number: US-DYAX CORP.-2013DX000054

PATIENT
  Age: 36 Year
  Sex: Female
  Weight: 69.46 kg

DRUGS (10)
  1. KALBITOR [Suspect]
     Indication: HEREDITARY ANGIOEDEMA
     Route: 058
     Dates: start: 20130319, end: 20130319
  2. KALBITOR [Suspect]
     Route: 058
     Dates: start: 201301, end: 201301
  3. KALBITOR [Suspect]
     Route: 058
     Dates: start: 201205
  4. CINRYZE [Concomitant]
     Indication: HEREDITARY ANGIOEDEMA
     Dosage: DRUG ROUTE: INTRAVENOUS
     Route: 042
     Dates: start: 201204
  5. FIRAZYR [Concomitant]
     Indication: HEREDITARY ANGIOEDEMA
     Route: 058
  6. PROPANOLOL [Concomitant]
     Indication: HYPERTENSION
     Route: 048
     Dates: start: 2011
  7. PROPANOLOL [Concomitant]
     Indication: MIGRAINE PROPHYLAXIS
  8. PRILOSEC [Concomitant]
     Indication: GASTROOESOPHAGEAL REFLUX DISEASE
     Route: 048
  9. ZOFRAN [Concomitant]
     Indication: NAUSEA
     Route: 048
     Dates: start: 2012
  10. EXCEDRIN MIGRAINE [Concomitant]
     Indication: MIGRAINE
     Dosage: DAILY DOSE: 2 TABLET,
     Route: 048

REACTIONS (1)
  - Drug ineffective [Unknown]
